FAERS Safety Report 6729895-3 (Version None)
Quarter: 2010Q2

REPORT INFORMATION
  Report Type: 
  Country: None (occurrence: None)
  Receive Date: 20100518
  Receipt Date: 20100504
  Transmission Date: 20101027
  Serious: Yes (Hospitalization, Other)
  Sender: FDA-Public Use
  Company Number: PHHY2010US28836

PATIENT
  Sex: Male

DRUGS (2)
  1. DIOVAN [Suspect]
     Dosage: HALF OF 80 MG
  2. ASPIRIN [Concomitant]

REACTIONS (6)
  - BALANCE DISORDER [None]
  - DIZZINESS [None]
  - GAIT DISTURBANCE [None]
  - MUSCLE TIGHTNESS [None]
  - PARAESTHESIA [None]
  - RENAL SURGERY [None]
